FAERS Safety Report 9485367 (Version 2)
Quarter: 2013Q3

REPORT INFORMATION
  Report Type: Spontaneous
  Country: US (occurrence: US)
  Receive Date: 20130828
  Receipt Date: 20130828
  Transmission Date: 20140515
  Serious: Yes (Other)
  Sender: FDA-Public Use
  Company Number: US-MYLANLABS-2013S1018694

PATIENT
  Age: 87 Year
  Sex: Male

DRUGS (2)
  1. DOXAZOSIN [Suspect]
     Indication: BLOOD PRESSURE INCREASED
     Route: 048
     Dates: start: 20130724, end: 20130726
  2. DOXAZOSIN [Suspect]
     Indication: PROSTATIC DISORDER
     Route: 048
     Dates: start: 20130724, end: 20130726

REACTIONS (3)
  - Drug effect increased [Recovered/Resolved]
  - Unresponsive to stimuli [Recovered/Resolved]
  - Hypotension [Recovered/Resolved]
